FAERS Safety Report 5949879-2 (Version None)
Quarter: 2008Q4

REPORT INFORMATION
  Report Type: 
  Country: None (occurrence: None)
  Receive Date: 20081112
  Receipt Date: 20081106
  Transmission Date: 20090506
  Serious: Yes (Death)
  Sender: FDA-Public Use
  Company Number: US-BRISTOL-MYERS SQUIBB COMPANY-14402937

PATIENT
  Sex: Male

DRUGS (5)
  1. EFAVIRENZ [Suspect]
     Route: 048
  2. RITONAVIR [Suspect]
     Dosage: TAB FORM
     Route: 048
  3. DARUNAVIR [Suspect]
     Dosage: TAB FORM
     Route: 048
  4. RALTEGRAVIR [Suspect]
     Dosage: TAB RALTEGRAVIR POTASSIUM
     Route: 048
  5. EMTRICITABINE [Suspect]
     Dosage: TAB FORM
     Route: 048

REACTIONS (1)
  - RESPIRATORY FAILURE [None]
